FAERS Safety Report 21048748 (Version 1)
Quarter: 2022Q3

REPORT INFORMATION
  Report Type: Spontaneous
  Country: US (occurrence: US)
  Receive Date: 20220706
  Receipt Date: 20220706
  Transmission Date: 20221027
  Serious: Yes (Hospitalization)
  Sender: FDA-Public Use
  Company Number: US-MYLANLABS-2022M1050113

PATIENT
  Sex: Female

DRUGS (5)
  1. PREDNISONE [Suspect]
     Active Substance: PREDNISONE
     Indication: Skin plaque
     Dosage: UNK
     Route: 065
  2. CLOBETASOL [Concomitant]
     Active Substance: CLOBETASOL
     Indication: Skin plaque
     Dosage: UNK
     Route: 061
  3. DAPSONE [Concomitant]
     Active Substance: DAPSONE
     Indication: Skin plaque
     Dosage: UNK
     Route: 065
  4. PENTOXIFYLLINE [Concomitant]
     Active Substance: PENTOXIFYLLINE
     Indication: Skin plaque
     Dosage: UNK
     Route: 065
  5. HYDROXYCHLOROQUINE [Concomitant]
     Active Substance: HYDROXYCHLOROQUINE
     Indication: Skin plaque
     Dosage: UNK
     Route: 065

REACTIONS (2)
  - Blood glucose abnormal [Recovered/Resolved]
  - Diabetic ketoacidosis [Recovered/Resolved]
